FAERS Safety Report 4752643-3 (Version None)
Quarter: 2005Q3

REPORT INFORMATION
  Report Type: 
  Country: None (occurrence: None)
  Receive Date: 20050823
  Receipt Date: 20050810
  Transmission Date: 20060218
  Serious: Yes (Other)
  Sender: FDA-Public Use
  Company Number: CA_050808591

PATIENT
  Age: 18 Year
  Sex: Female

DRUGS (2)
  1. ZYPREXA [Suspect]
     Dates: start: 20040801
  2. TOPAMAX 9TOPIRAMATE0 [Concomitant]

REACTIONS (1)
  - OPHTHALMOPLEGIA [None]
